FAERS Safety Report 11086480 (Version 2)
Quarter: 2015Q2

REPORT INFORMATION
  Report Type: Spontaneous
  Country: GB (occurrence: GB)
  Receive Date: 20150504
  Receipt Date: 20150521
  Transmission Date: 20150821
  Serious: Yes (Death)
  Sender: FDA-Public Use
  Company Number: GB-ROCHE-1571020

PATIENT
  Age: 78 Year
  Sex: Female

DRUGS (8)
  1. OMEPRAZOLE. [Concomitant]
     Active Substance: OMEPRAZOLE
  2. ACTILYSE [Suspect]
     Active Substance: ALTEPLASE
     Indication: ISCHAEMIC STROKE
     Route: 042
     Dates: start: 20150226, end: 20150226
  3. BISOPROLOL [Concomitant]
     Active Substance: BISOPROLOL
  4. ASPIRIN. [Concomitant]
     Active Substance: ASPIRIN
  5. DIGOXIN. [Concomitant]
     Active Substance: DIGOXIN
  6. PARACETAMOL [Concomitant]
     Active Substance: ACETAMINOPHEN
  7. SPIRONOLACTONE. [Concomitant]
     Active Substance: SPIRONOLACTONE
  8. PRADAXA [Suspect]
     Active Substance: DABIGATRAN ETEXILATE MESYLATE
     Indication: ATRIAL FIBRILLATION
     Route: 048
     Dates: start: 20150314, end: 20150410

REACTIONS (5)
  - Haemorrhage [Fatal]
  - Thyroid haemorrhage [Fatal]
  - Obstructive airways disorder [Fatal]
  - Cyst [Fatal]
  - Dyspnoea [Fatal]

NARRATIVE: CASE EVENT DATE: 20150411
